FAERS Safety Report 6132964-2 (Version None)
Quarter: 2009Q1

REPORT INFORMATION
  Report Type: 
  Country: None (occurrence: None)
  Receive Date: 20090326
  Receipt Date: 20090320
  Transmission Date: 20090719
  Serious: Yes (Disabling)
  Sender: FDA-Public Use
  Company Number: US-JNJFOC-20081005778

PATIENT
  Sex: Male
  Weight: 83.92 kg

DRUGS (8)
  1. LEVAQUIN [Suspect]
     Route: 048
  2. LEVAQUIN [Suspect]
     Indication: UPPER RESPIRATORY TRACT INFECTION
     Route: 048
  3. MEDROL [Suspect]
     Indication: UPPER RESPIRATORY TRACT INFECTION
  4. ALLOPURINOL [Concomitant]
  5. INDOMETHACIN [Concomitant]
  6. LISINOPRIL [Concomitant]
  7. ASPIRIN [Concomitant]
  8. VIAGRA [Concomitant]

REACTIONS (2)
  - PERONEAL NERVE PALSY [None]
  - TENDON RUPTURE [None]
